FAERS Safety Report 12872724 (Version 1)
Quarter: 2016Q4

REPORT INFORMATION
  Report Type: Spontaneous
  Country: US (occurrence: US)
  Receive Date: 20161021
  Receipt Date: 20161021
  Transmission Date: 20170207
  Serious: Yes (Other)
  Sender: FDA-Public Use
  Company Number: US-BAUSCH-BL-2016-025182

PATIENT
  Age: 63 Year
  Sex: Male

DRUGS (6)
  1. VANCOMYCIN [Suspect]
     Active Substance: VANCOMYCIN
     Indication: ENDOPHTHALMITIS
     Route: 031
  2. DEXAMETHASONE. [Suspect]
     Active Substance: DEXAMETHASONE
     Indication: ENDOPHTHALMITIS
     Route: 031
  3. AVELOX [Suspect]
     Active Substance: MOXIFLOXACIN HYDROCHLORIDE
     Indication: ENDOPHTHALMITIS
     Route: 048
  4. ATROPINE. [Suspect]
     Active Substance: ATROPINE
     Indication: ENDOPHTHALMITIS
     Route: 061
  5. CEFTAZIDIME. [Suspect]
     Active Substance: CEFTAZIDIME
     Indication: ENDOPHTHALMITIS
     Route: 031
  6. PREDNISOLONE. [Suspect]
     Active Substance: PREDNISOLONE
     Indication: ENDOPHTHALMITIS
     Route: 061

REACTIONS (2)
  - Drug resistance [Unknown]
  - Disease progression [Recovered/Resolved]
